FAERS Safety Report 14258913 (Version 1)
Quarter: 2017Q4

REPORT INFORMATION
  Report Type: Spontaneous
  Country: US (occurrence: US)
  Receive Date: 20171207
  Receipt Date: 20171207
  Transmission Date: 20180321
  Serious: No
  Sender: FDA-Public Use
  Company Number: US-ALLERGAN-1754374US

PATIENT
  Age: 80 Year
  Sex: Male

DRUGS (2)
  1. OXYCONTIN [Concomitant]
     Active Substance: OXYCODONE HYDROCHLORIDE
     Indication: PAIN
     Dosage: 30 MG, UNK
     Route: 048
     Dates: start: 2016
  2. VIBERZI [Suspect]
     Active Substance: ELUXADOLINE
     Indication: DRUG USE DISORDER
     Dosage: 100 MG, BID
     Route: 048
     Dates: start: 20170919, end: 20170919

REACTIONS (7)
  - Insomnia [Not Recovered/Not Resolved]
  - Contraindicated drug prescribed [Unknown]
  - Pain in extremity [Not Recovered/Not Resolved]
  - Neuralgia [Not Recovered/Not Resolved]
  - Restlessness [Not Recovered/Not Resolved]
  - Off label use [Unknown]
  - Back pain [Not Recovered/Not Resolved]

NARRATIVE: CASE EVENT DATE: 20170919
